FAERS Safety Report 4790268-4 (Version None)
Quarter: 2005Q3

REPORT INFORMATION
  Report Type: 
  Country: None (occurrence: None)
  Receive Date: 20050914
  Receipt Date: 20041209
  Transmission Date: 20060218
  Serious: Yes (Hospitalization)
  Sender: FDA-Public Use
  Company Number: 163-20785-04120295

PATIENT
  Age: 61 Year
  Sex: Male

DRUGS (6)
  1. THALOMID [Suspect]
     Indication: MULTIPLE MYELOMA
     Dosage: 200 MG, DAILY, ORAL
     Route: 048
     Dates: start: 20041015
  2. DECADRON [Concomitant]
  3. PROCRIT [Concomitant]
  4. PAMIDRONATE DISODIUM [Concomitant]
  5. PAIN MEDICATIONS (ANALGESICS) [Concomitant]
  6. NEBULIZERS [Concomitant]

REACTIONS (5)
  - DEEP VEIN THROMBOSIS [None]
  - DISEASE PROGRESSION [None]
  - DISEASE RECURRENCE [None]
  - DYSPNOEA [None]
  - RESPIRATORY TRACT INFECTION [None]
